FAERS Safety Report 6426858-2 (Version None)
Quarter: 2009Q4

REPORT INFORMATION
  Report Type: 
  Country: None (occurrence: None)
  Receive Date: 20091104
  Receipt Date: 20091029
  Transmission Date: 20100525
  Serious: Yes (Death, Hospitalization)
  Sender: FDA-Public Use
  Company Number: US-ABBOTT-09P-163-0596554-00

PATIENT
  Sex: Male
  Weight: 56.75 kg

DRUGS (11)
  1. SYNTHROID [Suspect]
     Indication: HYPOTHYROIDISM
     Dosage: UNKNOWN
     Dates: start: 20080605, end: 20081211
  2. SIMVASTATIN [Concomitant]
     Indication: CORONARY ARTERY DISEASE
  3. ASPIRIN [Concomitant]
     Indication: CORONARY ARTERY DISEASE
  4. PLAVIX [Concomitant]
     Indication: CORONARY ARTERY DISEASE
  5. IMDUR [Concomitant]
     Indication: CORONARY ARTERY DISEASE
  6. METOPROLOL [Concomitant]
     Indication: ESSENTIAL HYPERTENSION
  7. PHOSLO [Concomitant]
     Indication: RENAL FAILURE CHRONIC
  8. HUMULIN R [Concomitant]
     Indication: DIABETES MELLITUS
     Dosage: UNKNOWN
     Route: 058
  9. HUMALOG [Concomitant]
     Indication: DIABETES MELLITUS
     Dosage: UNKNOWN
     Route: 058
  10. LANTUS [Concomitant]
     Indication: DIABETES MELLITUS
     Dosage: UNKNOWN
     Route: 058
  11. VITAMINS [Concomitant]
     Indication: VITAMIN SUPPLEMENTATION
     Dosage: UNKNOWN

REACTIONS (5)
  - ACUTE MYOCARDIAL INFARCTION [None]
  - ACUTE RESPIRATORY FAILURE [None]
  - DYSPNOEA [None]
  - FLUID OVERLOAD [None]
  - HYPERGLYCAEMIA [None]
